FAERS Safety Report 6454868-8 (Version None)
Quarter: 2009Q4

REPORT INFORMATION
  Report Type: 
  Country: None (occurrence: None)
  Receive Date: 20091124
  Receipt Date: 20091113
  Transmission Date: 20100525
  Serious: Yes (Other)
  Sender: FDA-Public Use
  Company Number: GR-GENENTECH-294693

PATIENT
  Age: 31 Year
  Sex: Male

DRUGS (2)
  1. METALYSE [Suspect]
     Indication: THROMBOSIS
     Dosage: 6000 U, X1
     Route: 042
  2. ACENOCOUMAROL [Concomitant]
     Indication: ANTICOAGULANT THERAPY
     Dosage: UNK
     Route: 048

REACTIONS (2)
  - INTERMITTENT CLAUDICATION [None]
  - PERIPHERAL EMBOLISM [None]
